FAERS Safety Report 5708148-6 (Version None)
Quarter: 2008Q2

REPORT INFORMATION
  Report Type: 
  Country: None (occurrence: None)
  Receive Date: 20080417
  Receipt Date: 20080407
  Transmission Date: 20081010
  Serious: Yes (Life-Threatening, Hospitalization)
  Sender: FDA-Public Use
  Company Number: B0508796A

PATIENT
  Age: 42 Year
  Sex: Female

DRUGS (2)
  1. DEROXAT [Suspect]
     Indication: DEPRESSION
     Dosage: 20MG UNKNOWN
     Route: 048
     Dates: start: 20031127, end: 20031202
  2. ATARAX [Suspect]
     Indication: DEPRESSION
     Route: 048
     Dates: start: 20031127, end: 20031202

REACTIONS (4)
  - HYPOKALAEMIA [None]
  - SINUS TACHYCARDIA [None]
  - SUICIDE ATTEMPT [None]
  - TORSADE DE POINTES [None]
